FAERS Safety Report 6256070-1 (Version None)
Quarter: 2009Q2

REPORT INFORMATION
  Report Type: 
  Country: None (occurrence: None)
  Receive Date: 20090630
  Receipt Date: 20090630
  Transmission Date: 20091009
  Serious: Yes (Other)
  Sender: FDA-Public Use
  Company Number: None

PATIENT
  Age: 59 Year
  Sex: Female
  Weight: 89.8122 kg

DRUGS (1)
  1. ASTERPRO NASAL SPRAY SAMPLE 4ML 137MCG PER SPRAY MEDA PHARMACEUTICALS [Suspect]
     Indication: RHINITIS
     Dosage: 0.137 MG 2P BID NASAL
     Route: 045
     Dates: start: 20090608, end: 20090609

REACTIONS (3)
  - INCORRECT DOSE ADMINISTERED [None]
  - INCORRECT ROUTE OF DRUG ADMINISTRATION [None]
  - VOMITING [None]
